FAERS Safety Report 9374473 (Version 1)
Quarter: 2013Q2

REPORT INFORMATION
  Report Type: Spontaneous
  Country: US (occurrence: US)
  Receive Date: 20130628
  Receipt Date: 20130628
  Transmission Date: 20140414
  Serious: No
  Sender: FDA-Public Use
  Company Number: US-B.I. PHARMACEUTICALS,INC./RIDGEFIELD-2013-BI-17970BP

PATIENT
  Age: 82 Year
  Sex: Female
  Weight: 69 kg

DRUGS (1)
  1. COMBIVENT [Suspect]
     Indication: LUNG DISORDER
     Dosage: STRENGTH: 20 MCG / 100 MCG; DAILY DOSE: 120 MCG/600 MCG
     Route: 055
     Dates: start: 20130529

REACTIONS (1)
  - Prescribed overdose [Not Recovered/Not Resolved]
